FAERS Safety Report 14198566 (Version 1)
Quarter: 2017Q4

REPORT INFORMATION
  Report Type: Spontaneous
  Country: JP (occurrence: JP)
  Receive Date: 20171117
  Receipt Date: 20171117
  Transmission Date: 20180321
  Serious: Yes (Other)
  Sender: FDA-Public Use
  Company Number: JP-SUN PHARMACEUTICAL INDUSTRIES LTD-2017RR-152565

PATIENT
  Age: 71 Year
  Sex: Male
  Weight: 48 kg

DRUGS (2)
  1. GEMCITABINE [Suspect]
     Active Substance: GEMCITABINE\GEMCITABINE HYDROCHLORIDE
     Indication: PANCREATIC CARCINOMA METASTATIC
     Dosage: 1000 MG/M2, 3 WEEKS ADMINISTRATION, 1 WEEK OFF
     Route: 065
  2. NAB-PACLITAXEL [Suspect]
     Active Substance: PACLITAXEL
     Indication: PANCREATIC CARCINOMA METASTATIC
     Dosage: 125 MG/M2, 3 WEEKS ADMINISTRATION, 1 WEEK OFF
     Route: 065

REACTIONS (6)
  - Neuropathy peripheral [Unknown]
  - Drug effect incomplete [Unknown]
  - Alopecia [Unknown]
  - Neutropenia [Unknown]
  - Condition aggravated [Unknown]
  - Metastases to liver [Unknown]
